FAERS Safety Report 15306801 (Version 3)
Quarter: 2018Q3

REPORT INFORMATION
  Report Type: Report from Study
  Country: EC (occurrence: EC)
  Receive Date: 20180822
  Receipt Date: 20180919
  Transmission Date: 20181010
  Serious: Yes (Hospitalization, Other)
  Sender: FDA-Public Use
  Company Number: PHHY2018EC076139

PATIENT
  Age: 46 Year
  Sex: Female
  Weight: 83.5 kg

DRUGS (1)
  1. SANDOSTATIN LAR DEPOT [Suspect]
     Active Substance: OCTREOTIDE ACETATE
     Indication: NEUROENDOCRINE TUMOUR
     Dosage: 20 MG, QMO
     Route: 030
     Dates: start: 20180529

REACTIONS (11)
  - Asphyxia [Recovered/Resolved]
  - Dyspnoea [Unknown]
  - Chest pain [Recovered/Resolved]
  - Back pain [Not Recovered/Not Resolved]
  - Bone pain [Recovered/Resolved]
  - Nausea [Recovered/Resolved]
  - Pain in extremity [Recovered/Resolved]
  - Nephrolithiasis [Unknown]
  - Spinal cord disorder [Unknown]
  - Decreased appetite [Recovered/Resolved]
  - Blood pressure increased [Unknown]

NARRATIVE: CASE EVENT DATE: 20180809
